FAERS Safety Report 4409713-9 (Version None)
Quarter: 2004Q3

REPORT INFORMATION
  Report Type: 
  Country: None (occurrence: None)
  Receive Date: 20040728
  Receipt Date: 20040303
  Transmission Date: 20050211
  Serious: Yes (Hospitalization)
  Sender: FDA-Public Use
  Company Number: ES-BRISTOL-MYERS SQUIBB COMPANY-12522553

PATIENT
  Age: 47 Year
  Sex: Female

DRUGS (2)
  1. CETUXIMAB [Suspect]
     Indication: COLORECTAL CANCER METASTATIC
     Dosage: 1ST DOSE(12-NOV-03).DRUG DELAYED;RESUMED 09-MAR-04,
     Route: 042
     Dates: start: 20040224, end: 20040224
  2. IRINOTECAN [Suspect]
     Indication: COLORECTAL CANCER METASTATIC
     Dosage: 1ST DOSE 12-NOV-2003.
     Route: 042
     Dates: start: 20040224, end: 20040224

REACTIONS (2)
  - GASTROINTESTINAL MUCOSITIS [None]
  - INTESTINAL OBSTRUCTION [None]
